FAERS Safety Report 9289350 (Version 5)
Quarter: 2014Q2

REPORT INFORMATION
  Report Type: Spontaneous
  Country: US (occurrence: US)
  Receive Date: 20130514
  Receipt Date: 20140512
  Transmission Date: 20141212
  Serious: Yes (Hospitalization, Disabling, Other)
  Sender: FDA-Public Use
  Company Number: US-009507513-1305USA005533

PATIENT
  Sex: Female
  Weight: 68.27 kg

DRUGS (4)
  1. FOSAMAX [Suspect]
     Indication: OSTEOPOROSIS
     Dosage: 10 MG, UNK
     Route: 048
     Dates: start: 19980916, end: 20020610
  2. FOSAMAX [Suspect]
     Dosage: 70 MG, UNK
     Route: 048
     Dates: start: 20020610
  3. ALENDRONATE SODIUM [Suspect]
     Indication: OSTEOPOROSIS
     Dosage: 70 MG, UNK
     Route: 048
     Dates: start: 20080313, end: 20110503
  4. SYNTHROID [Concomitant]
     Indication: HYPOTHYROIDISM
     Dosage: UNK
     Dates: start: 1961

REACTIONS (36)
  - Intramedullary rod insertion [Unknown]
  - Low turnover osteopathy [Not Recovered/Not Resolved]
  - Cardiac failure congestive [Unknown]
  - Renal failure acute [Recovering/Resolving]
  - Femur fracture [Not Recovered/Not Resolved]
  - Femur fracture [Not Recovered/Not Resolved]
  - Impaired healing [Unknown]
  - Vitamin D deficiency [Unknown]
  - Tendonitis [Unknown]
  - Lower limb fracture [Unknown]
  - Fatigue [Unknown]
  - Arthritis [Unknown]
  - Lumbar radiculopathy [Unknown]
  - Osteopenia [Unknown]
  - Hypercholesterolaemia [Unknown]
  - Hypertension [Unknown]
  - Osteoarthritis [Unknown]
  - Urticaria chronic [Recovered/Resolved]
  - Anaemia [Unknown]
  - Anaemia [Unknown]
  - Ischaemic cardiomyopathy [Unknown]
  - Vitiligo [Unknown]
  - Hyperthyroidism [Unknown]
  - Kyphosis [Unknown]
  - Osteoarthritis [Unknown]
  - Sinusitis [Unknown]
  - Viral myocarditis [Unknown]
  - Fatigue [Unknown]
  - Palpitations [Unknown]
  - Atrial fibrillation [Recovered/Resolved]
  - Restless legs syndrome [Unknown]
  - Osteoarthritis [Unknown]
  - Coccydynia [Unknown]
  - Gastrooesophageal reflux disease [Unknown]
  - Joint swelling [Unknown]
  - Pain in extremity [Unknown]
